FAERS Safety Report 9827784 (Version 1)
Quarter: 2013Q4

REPORT INFORMATION
  Report Type: Spontaneous
  Country: US (occurrence: None)
  Receive Date: 20131120
  Receipt Date: 20131120
  Transmission Date: 20140711
  Serious: Yes (Other)
  Sender: FDA-Public Use
  Company Number: 1000050343

PATIENT
  Age: 32 Year
  Sex: Male

DRUGS (4)
  1. VIIBRYD [Suspect]
     Indication: DEPRESSION
     Route: 048
     Dates: start: 2012
  2. CRESTOR(ROSUVASTATIN CALCIUM)(ROSUVASTATIN CACLIUM) [Concomitant]
  3. AZOR(AMLODIPINE, OLMESARTAN)(AMLODIPINE, OLMESARTAN) [Concomitant]
  4. HYDROCHLOROTHIAZIDE(HYDROCHLOROTHIAZIDE)(HYDROCHLOROTHIAZIDE) [Concomitant]

REACTIONS (1)
  - Agitation [None]
